FAERS Safety Report 17073605 (Version 5)
Quarter: 2020Q1

REPORT INFORMATION
  Report Type: Report from Study
  Country: US (occurrence: US)
  Receive Date: 20191126
  Receipt Date: 20200116
  Transmission Date: 20200409
  Serious: Yes (Death, Hospitalization)
  Sender: FDA-Public Use
  Company Number: US-ACTELION-A-US2019-191458

PATIENT
  Age: 49 Year
  Sex: Male
  Weight: 70.3 kg

DRUGS (7)
  1. OXYGEN. [Concomitant]
     Active Substance: OXYGEN
     Dosage: 3 L
  2. VELETRI [Suspect]
     Active Substance: EPOPROSTENOL
     Indication: PULMONARY ARTERIAL HYPERTENSION
     Dosage: 19 NG/KG, PER MIN
     Route: 042
  3. VELETRI [Suspect]
     Active Substance: EPOPROSTENOL
     Dosage: 13 NG/KG, PER MIN
     Route: 042
  4. VELETRI [Suspect]
     Active Substance: EPOPROSTENOL
     Dosage: 11 NG/KG, PER MIN
     Route: 042
  5. VELETRI [Suspect]
     Active Substance: EPOPROSTENOL
     Dosage: 16.5 NG/KG, PER MIN
     Route: 042
  6. VELETRI [Suspect]
     Active Substance: EPOPROSTENOL
     Dosage: 17 UNK
     Route: 042
  7. OXYGEN. [Concomitant]
     Active Substance: OXYGEN
     Dosage: UNK

REACTIONS (18)
  - Death [Fatal]
  - Headache [Unknown]
  - Liver disorder [Unknown]
  - Influenza like illness [Unknown]
  - Chest pain [Unknown]
  - Diarrhoea [Unknown]
  - Dizziness [Unknown]
  - Hospitalisation [Unknown]
  - Product container issue [Unknown]
  - Emergency care [Unknown]
  - Dyspnoea [Unknown]
  - Renal failure [Unknown]
  - Hepatic failure [Unknown]
  - Feeling abnormal [Unknown]
  - Pruritus [Unknown]
  - Nausea [Unknown]
  - Pain in jaw [Unknown]
  - Hospice care [Unknown]

NARRATIVE: CASE EVENT DATE: 20191225
